FAERS Safety Report 19886517 (Version 1)
Quarter: 2021Q3

REPORT INFORMATION
  Report Type: Spontaneous
  Country: FR (occurrence: FR)
  Receive Date: 20210927
  Receipt Date: 20210927
  Transmission Date: 20211014
  Serious: Yes (Other)
  Sender: FDA-Public Use
  Company Number: FR-MYLANLABS-2021M1064586

PATIENT
  Age: 27 Year
  Sex: Female

DRUGS (2)
  1. TRAMADOL. [Suspect]
     Active Substance: TRAMADOL
     Indication: PRODUCT USED FOR UNKNOWN INDICATION
     Dosage: UNK, UP TO 25 TABLETS/D OF TRAMADOL + PARACETAMOL (37.5MG / 325 MG)
     Route: 048
  2. PARACETAMOL [Suspect]
     Active Substance: ACETAMINOPHEN
     Indication: PRODUCT USED FOR UNKNOWN INDICATION
     Dosage: UNK,UP TO 25 TABLETS/D OF TRAMADOL + PARACETAMOL (37.5MG / 325 MG)
     Route: 048

REACTIONS (1)
  - Drug use disorder [Not Recovered/Not Resolved]
